FAERS Safety Report 11422650 (Version 1)
Quarter: 2015Q3

REPORT INFORMATION
  Report Type: Spontaneous
  Country: US (occurrence: None)
  Receive Date: 20150826
  Receipt Date: 20150826
  Transmission Date: 20151125
  Serious: Yes (Hospitalization)
  Sender: FDA-Public Use
  Company Number: None

PATIENT
  Age: 29 Year
  Sex: Female
  Weight: 58.06 kg

DRUGS (2)
  1. ADDERALL [Concomitant]
     Active Substance: AMPHETAMINE ASPARTATE\AMPHETAMINE SULFATE\DEXTROAMPHETAMINE SACCHARATE\DEXTROAMPHETAMINE SULFATE
  2. MIRENA [Suspect]
     Active Substance: LEVONORGESTREL
     Dates: end: 20150803

REACTIONS (7)
  - Seizure [None]
  - Pelvic pain [None]
  - Ovarian cyst [None]
  - Blood prolactin increased [None]
  - Economic problem [None]
  - Unresponsive to stimuli [None]
  - Impaired driving ability [None]

NARRATIVE: CASE EVENT DATE: 20150515
